FAERS Safety Report 16732715 (Version 2)
Quarter: 2019Q3

REPORT INFORMATION
  Report Type: Spontaneous
  Country: US (occurrence: US)
  Receive Date: 20190823
  Receipt Date: 20190919
  Transmission Date: 20191005
  Serious: No
  Sender: FDA-Public Use
  Company Number: US-CELGENEUS-USA-20190805412

PATIENT
  Sex: Male

DRUGS (4)
  1. OLUX-E [Concomitant]
     Active Substance: CLOBETASOL PROPIONATE
     Indication: PSORIASIS
     Dosage: 0.057%
     Route: 061
     Dates: start: 20140814
  2. OTEZLA [Suspect]
     Active Substance: APREMILAST
     Indication: PSORIASIS
     Dosage: 60 MILLIGRAM
     Route: 048
     Dates: start: 20180622
  3. OTEZLA [Suspect]
     Active Substance: APREMILAST
     Dosage: 60 MILLIGRAM
     Route: 048
     Dates: start: 201811
  4. TAZORAC [Concomitant]
     Active Substance: TAZAROTENE
     Indication: PSORIASIS
     Dosage: 0.1%
     Route: 061
     Dates: start: 20181207

REACTIONS (1)
  - Dry skin [Recovering/Resolving]
